FAERS Safety Report 13632389 (Version 1)
Quarter: 2017Q2

REPORT INFORMATION
  Report Type: Report from Study
  Country: CA (occurrence: CA)
  Receive Date: 20170608
  Receipt Date: 20170608
  Transmission Date: 20170830
  Serious: Yes (Other)
  Sender: FDA-Public Use
  Company Number: CA-AMGEN-CANSL2017083989

PATIENT
  Sex: Female

DRUGS (1)
  1. ENBREL [Suspect]
     Active Substance: ETANERCEPT
     Indication: PSORIATIC ARTHROPATHY
     Dosage: 25 MG, UNK
     Route: 065
     Dates: start: 20090129

REACTIONS (5)
  - Arthropathy [Unknown]
  - Renal disorder [Unknown]
  - Gastric disorder [Unknown]
  - Musculoskeletal disorder [Unknown]
  - Foot deformity [Unknown]
